FAERS Safety Report 6888895-3 (Version None)
Quarter: 2010Q3

REPORT INFORMATION
  Report Type: 
  Country: None (occurrence: None)
  Receive Date: 20100730
  Receipt Date: 20071110
  Transmission Date: 20110219
  Serious: No
  Sender: FDA-Public Use
  Company Number: US-PFIZER INC-2007095067

PATIENT
  Sex: Female
  Weight: 90.9 kg

DRUGS (4)
  1. LIPITOR [Suspect]
     Indication: BLOOD CHOLESTEROL INCREASED
     Dates: start: 20071109, end: 20071110
  2. VITAMINS [Concomitant]
  3. DIURETICS [Concomitant]
  4. POTASSIUM [Concomitant]

REACTIONS (1)
  - MUSCLE SPASMS [None]
